FAERS Safety Report 5236755-6 (Version None)
Quarter: 2007Q1

REPORT INFORMATION
  Report Type: 
  Country: None (occurrence: None)
  Receive Date: 20061208
  Receipt Date: 20050119
  Transmission Date: 20070707
  Serious: Yes (Other)
  Sender: FDA-Public Use
  Company Number: 2005UW00953

PATIENT
  Age: 65 Year
  Sex: Female
  Weight: 65.77 kg

DRUGS (8)
  1. CRESTOR [Suspect]
     Indication: BLOOD CHOLESTEROL INCREASED
     Dosage: 10 MG DAILY PO
     Route: 048
     Dates: start: 20040801, end: 20050101
  2. PROZAC [Concomitant]
  3. LASIX [Concomitant]
  4. TEMAZEPAM [Concomitant]
  5. SPIRONOLACTONE [Concomitant]
  6. NEURONTIN [Concomitant]
  7. DARVOCET-N 100 [Concomitant]
  8. ZANAFLEX [Concomitant]

REACTIONS (1)
  - ALOPECIA [None]
